FAERS Safety Report 13497834 (Version 2)
Quarter: 2017Q2

REPORT INFORMATION
  Report Type: Spontaneous
  Country: CA (occurrence: CA)
  Receive Date: 20170428
  Receipt Date: 20170511
  Transmission Date: 20170830
  Serious: Yes (Other)
  Sender: FDA-Public Use
  Company Number: CA-TEVA-753862USA

PATIENT
  Age: 62 Year
  Sex: Male

DRUGS (4)
  1. SEPTRA [Suspect]
     Active Substance: SULFAMETHOXAZOLE\TRIMETHOPRIM
     Indication: PRODUCT USED FOR UNKNOWN INDICATION
     Route: 065
  2. TREANDA [Suspect]
     Active Substance: BENDAMUSTINE HYDROCHLORIDE
     Route: 042
  3. LAMIVUDINE. [Suspect]
     Active Substance: LAMIVUDINE
     Indication: PRODUCT USED FOR UNKNOWN INDICATION
     Route: 065
  4. TREANDA [Suspect]
     Active Substance: BENDAMUSTINE HYDROCHLORIDE
     Indication: CHRONIC LYMPHOCYTIC LEUKAEMIA
     Route: 042
     Dates: start: 20170214, end: 20170215

REACTIONS (2)
  - Dermatitis exfoliative [Recovering/Resolving]
  - Thrombocytopenia [Unknown]

NARRATIVE: CASE EVENT DATE: 20170228
